FAERS Safety Report 5128275-4 (Version None)
Quarter: 2006Q4

REPORT INFORMATION
  Report Type: 
  Country: None (occurrence: None)
  Receive Date: 20061017
  Receipt Date: 20031210
  Transmission Date: 20070319
  Serious: Yes (Congenital Anomaly)
  Sender: FDA-Public Use
  Company Number: FR-ABBOTT-03P-056-0244593-00

PATIENT
  Sex: Male

DRUGS (1)
  1. DEPAKENE [Suspect]
     Indication: DRUG EXPOSURE DURING PREGNANCY
     Dosage: 250MG AM AND 1250MG PM

REACTIONS (20)
  - ABNORMAL BEHAVIOUR [None]
  - ANGER [None]
  - DEVELOPMENTAL COORDINATION DISORDER [None]
  - DEVELOPMENTAL DELAY [None]
  - DYSMORPHISM [None]
  - EAR INFECTION [None]
  - ECHOLALIA [None]
  - FLAT FEET [None]
  - HAIR GROWTH ABNORMAL [None]
  - HAND DEFORMITY [None]
  - HEARING IMPAIRED [None]
  - HYPERKERATOSIS [None]
  - HYPOREFLEXIA [None]
  - JOINT HYPEREXTENSION [None]
  - KNEE DEFORMITY [None]
  - MYOPIA [None]
  - SCROTAL DISORDER [None]
  - SUPERNUMERARY NIPPLE [None]
  - TOE DEFORMITY [None]
  - UNEVALUABLE EVENT [None]
